FAERS Safety Report 7242356-0 (Version None)
Quarter: 2011Q1

REPORT INFORMATION
  Report Type: 
  Country: None (occurrence: None)
  Receive Date: 20110125
  Receipt Date: 20110113
  Transmission Date: 20110831
  Serious: No
  Sender: FDA-Public Use
  Company Number: US-BIOGENIDEC-2010BI014596

PATIENT
  Age: 35 Year
  Sex: Male

DRUGS (5)
  1. TYSABRI [Suspect]
     Route: 042
     Dates: start: 20100818
  2. AVONEX [Concomitant]
     Indication: MULTIPLE SCLEROSIS
     Route: 030
     Dates: start: 20091001
  3. AVONEX [Concomitant]
     Route: 030
     Dates: start: 20020101, end: 20040101
  4. TYSABRI [Suspect]
     Indication: MULTIPLE SCLEROSIS
     Route: 042
     Dates: start: 20091023, end: 20100312
  5. AMPYRA [Concomitant]
     Indication: GAIT DISTURBANCE

REACTIONS (12)
  - DEPRESSED MOOD [None]
  - RESPIRATORY TRACT CONGESTION [None]
  - LOSS OF CONTROL OF LEGS [None]
  - PAIN [None]
  - ASTHENIA [None]
  - PAIN IN EXTREMITY [None]
  - GAIT DISTURBANCE [None]
  - NUCLEAR MAGNETIC RESONANCE IMAGING BRAIN ABNORMAL [None]
  - ABASIA [None]
  - OEDEMA PERIPHERAL [None]
  - DYSSTASIA [None]
  - FATIGUE [None]
